FAERS Safety Report 8074754-X (Version None)
Quarter: 2012Q1

REPORT INFORMATION
  Report Type: 
  Country: None (occurrence: None)
  Receive Date: 20120126
  Receipt Date: 20120118
  Transmission Date: 20120608
  Serious: Yes (Hospitalization, Disabling, Other)
  Sender: FDA-Public Use
  Company Number: US-MERCK-1109USA02145

PATIENT
  Age: 55 Year
  Sex: Female
  Weight: 62 kg

DRUGS (5)
  1. FOSAMAX PLUS D [Suspect]
     Indication: OSTEOPENIA
     Route: 048
     Dates: start: 20050723, end: 20060701
  2. BONIVA [Suspect]
     Route: 065
     Dates: start: 20060101, end: 20090101
  3. BONIVA [Suspect]
     Indication: OSTEOPENIA
     Route: 065
     Dates: start: 20060701
  4. BONIVA [Suspect]
     Indication: OSTEOPOROSIS
     Route: 065
     Dates: start: 20060701
  5. BONIVA [Suspect]
     Route: 065
     Dates: start: 20060101, end: 20090101

REACTIONS (51)
  - BURNS THIRD DEGREE [None]
  - NERVE INJURY [None]
  - EAR PAIN [None]
  - DIVERTICULUM [None]
  - ANAEMIA [None]
  - FEMUR FRACTURE [None]
  - POST PROCEDURAL HAEMORRHAGE [None]
  - NEURALGIA [None]
  - LUNG NEOPLASM [None]
  - INTERNATIONAL NORMALISED RATIO INCREASED [None]
  - INTRA-ABDOMINAL HAEMORRHAGE [None]
  - FOOT DEFORMITY [None]
  - DECUBITUS ULCER [None]
  - SYNOVIAL CYST [None]
  - MONONEUROPATHY [None]
  - LUNG DISORDER [None]
  - TOOTH DISORDER [None]
  - GENERALISED ANXIETY DISORDER [None]
  - DRUG HYPERSENSITIVITY [None]
  - INTERVERTEBRAL DISC DISORDER [None]
  - ARTHRALGIA [None]
  - MYOFASCIAL PAIN SYNDROME [None]
  - HAEMORRHAGIC ANAEMIA [None]
  - VERTEBRAL FORAMINAL STENOSIS [None]
  - SCIATICA [None]
  - NEURITIS [None]
  - FRACTURE NONUNION [None]
  - TYMPANIC MEMBRANE PERFORATION [None]
  - ROTATOR CUFF SYNDROME [None]
  - NEUROPATHY PERIPHERAL [None]
  - INTERVERTEBRAL DISC DEGENERATION [None]
  - BONE DISORDER [None]
  - BUNION [None]
  - FALL [None]
  - DEVICE FAILURE [None]
  - ADVERSE DRUG REACTION [None]
  - CHONDROPATHY [None]
  - CERVICAL SPINAL STENOSIS [None]
  - INSOMNIA [None]
  - MITRAL VALVE PROLAPSE [None]
  - FIBROMYALGIA [None]
  - SPINAL OSTEOARTHRITIS [None]
  - NAUSEA [None]
  - AMNESIA [None]
  - MASS [None]
  - VASCULAR CALCIFICATION [None]
  - SPINAL CORD COMPRESSION [None]
  - PAIN IN EXTREMITY [None]
  - PERONEAL NERVE PALSY [None]
  - POLYP COLORECTAL [None]
  - JOINT EFFUSION [None]
